FAERS Safety Report 24546129 (Version 1)
Quarter: 2024Q4

REPORT INFORMATION
  Report Type: Report from Study
  Country: EG (occurrence: EG)
  Receive Date: 20241024
  Receipt Date: 20241024
  Transmission Date: 20250114
  Serious: Yes (Death, Other)
  Sender: PFIZER
  Company Number: EG-TAKEDA-2024TUS106607

PATIENT
  Age: 19 Year
  Sex: Male

DRUGS (1)
  1. ADCETRIS [Suspect]
     Active Substance: BRENTUXIMAB VEDOTIN
     Indication: Hodgkin^s disease refractory
     Dosage: 3 VIALS PER CYCLE Q3WEEKS.
     Route: 042
     Dates: start: 20240124, end: 20240321

REACTIONS (1)
  - Death [Fatal]
